FAERS Safety Report 5091054-0 (Version None)
Quarter: 2006Q3

REPORT INFORMATION
  Report Type: 
  Country: None (occurrence: None)
  Receive Date: 20060829
  Receipt Date: 20060609
  Transmission Date: 20061208
  Serious: No
  Sender: FDA-Public Use
  Company Number: US-GLAXOSMITHKLINE-A0608495A

PATIENT
  Age: 66 Year
  Sex: Female

DRUGS (4)
  1. ACYCLOVIR [Suspect]
     Route: 048
     Dates: start: 20060330
  2. LAMICTAL [Suspect]
     Indication: BIPOLAR DISORDER
     Dosage: 50MG PER DAY
     Route: 048
     Dates: end: 20060211
  3. PROZAC [Concomitant]
  4. SYNTHROID [Concomitant]

REACTIONS (5)
  - DEREALISATION [None]
  - LOCAL SWELLING [None]
  - MOVEMENT DISORDER [None]
  - PRURITUS [None]
  - RASH PAPULAR [None]
